FAERS Safety Report 6427790-0 (Version None)
Quarter: 2009Q4

REPORT INFORMATION
  Report Type: 
  Country: None (occurrence: None)
  Receive Date: 20091105
  Receipt Date: 20091027
  Transmission Date: 20100525
  Serious: Yes (Hospitalization)
  Sender: FDA-Public Use
  Company Number: JP-WYE-H10875109

PATIENT
  Sex: Female
  Weight: 45 kg

DRUGS (9)
  1. ZOSYN [Suspect]
     Indication: RETROPERITONEAL ABSCESS
     Route: 041
     Dates: start: 20090805, end: 20090820
  2. VEEN D [Concomitant]
     Indication: DEHYDRATION
     Route: 041
     Dates: start: 20090814, end: 20090817
  3. GLUCOSE [Concomitant]
     Indication: DEHYDRATION
     Route: 041
     Dates: start: 20090814, end: 20090820
  4. LANSOPRAZOLE [Concomitant]
     Indication: GASTRIC ULCER
     Route: 048
     Dates: start: 20090815, end: 20090827
  5. LANSOPRAZOLE [Concomitant]
     Route: 042
     Dates: start: 20090819, end: 20090820
  6. HEPARIN SODIUM [Concomitant]
     Indication: INTRAVENOUS CATHETER MANAGEMENT
     Dosage: UNKNOWN
     Route: 042
  7. ACETIC ACID [Concomitant]
     Indication: DEHYDRATION
     Route: 041
     Dates: start: 20090814, end: 20090820
  8. SEISHOKU [Concomitant]
     Indication: DRUG USE FOR UNKNOWN INDICATION
     Route: 041
     Dates: start: 20090805, end: 20090820
  9. LOXONIN [Concomitant]
     Indication: SPINAL OSTEOARTHRITIS
     Route: 048
     Dates: start: 20090814, end: 20090821

REACTIONS (1)
  - FEBRILE NEUTROPENIA [None]
